FAERS Safety Report 7369917-2 (Version None)
Quarter: 2011Q1

REPORT INFORMATION
  Report Type: 
  Country: None (occurrence: None)
  Receive Date: 20110323
  Receipt Date: 20110314
  Transmission Date: 20110831
  Serious: Yes (Hospitalization, Disabling, Other)
  Sender: FDA-Public Use
  Company Number: US-PFIZER INC-2010181807

PATIENT
  Sex: Female

DRUGS (20)
  1. DITROPAN [Concomitant]
     Indication: INCONTINENCE
     Dosage: UNK
     Dates: start: 20080101
  2. ALBUTEROL [Concomitant]
     Indication: CHRONIC OBSTRUCTIVE PULMONARY DISEASE
  3. SINGULAIR [Concomitant]
     Indication: SINUSITIS
  4. SALBUTAMOL SULFATE [Concomitant]
     Indication: CHRONIC OBSTRUCTIVE PULMONARY DISEASE
  5. METFORMIN [Concomitant]
     Indication: DIABETES MELLITUS
     Dosage: UNK
     Dates: start: 20070101
  6. ALBUTEROL [Concomitant]
     Indication: ASTHMA
  7. LISINOPRIL [Concomitant]
     Indication: HYPERTENSION
     Dosage: UNK
     Dates: start: 20070101
  8. IRON SULFATETHIAMIN COMPOUND TAB [Concomitant]
     Indication: MEDICAL DIET
     Dosage: UNK
     Dates: start: 20070101
  9. PRILOSEC [Concomitant]
     Indication: GASTROOESOPHAGEAL REFLUX DISEASE
     Dosage: UNK
     Dates: start: 20080101
  10. SALBUTAMOL SULFATE [Concomitant]
     Indication: ASTHMA
     Dosage: UNK
     Dates: start: 20080101
  11. SINGULAIR [Concomitant]
     Indication: ASTHMA
  12. AVANDIA [Concomitant]
     Indication: DIABETES MELLITUS
     Dosage: UNK
     Dates: start: 20080101, end: 20100101
  13. SINGULAIR [Concomitant]
     Indication: CHRONIC OBSTRUCTIVE PULMONARY DISEASE
  14. CHANTIX [Suspect]
     Indication: SMOKING CESSATION THERAPY
     Dosage: STARTING MONTH PACK AND CONTINUING MONTH PACK
     Dates: start: 20090228, end: 20090314
  15. ALBUTEROL [Concomitant]
     Indication: BRONCHITIS
     Dosage: UNK
     Dates: start: 20080101
  16. LORTAB [Concomitant]
     Indication: PAIN
     Dosage: UNK
     Dates: start: 20080101
  17. SINGULAIR [Concomitant]
     Indication: HYPERSENSITIVITY
  18. ACETYLSALICYLIC ACID [Concomitant]
     Indication: CHEST PAIN
     Dosage: UNK
     Dates: start: 20070101
  19. DETROL LA [Concomitant]
     Indication: INCONTINENCE
     Dosage: UNK
     Dates: start: 20080101
  20. GLUCOPHAGE [Concomitant]
     Indication: DIABETES MELLITUS
     Dosage: UNK
     Dates: start: 20070101

REACTIONS (13)
  - VISUAL IMPAIRMENT [None]
  - NIGHTMARE [None]
  - HALLUCINATION, VISUAL [None]
  - SUICIDE ATTEMPT [None]
  - ANXIETY [None]
  - SOCIAL AVOIDANT BEHAVIOUR [None]
  - DEPRESSION [None]
  - AGGRESSION [None]
  - HALLUCINATION, AUDITORY [None]
  - PANIC ATTACK [None]
  - HALLUCINATION, TACTILE [None]
  - INSOMNIA [None]
  - INTENTIONAL OVERDOSE [None]
